FAERS Safety Report 9707450 (Version 2)
Quarter: 2013Q4

REPORT INFORMATION
  Report Type: Spontaneous
  Country: US (occurrence: US)
  Receive Date: 20131125
  Receipt Date: 20131210
  Transmission Date: 20140711
  Serious: No
  Sender: FDA-Public Use
  Company Number: US-TEVA-374660USA

PATIENT
  Age: 25 Year
  Sex: Female
  Weight: 86.26 kg

DRUGS (3)
  1. PARAGARD 380A [Suspect]
     Indication: CONTRACEPTION
     Route: 015
     Dates: start: 20121029
  2. MELOXICAM [Concomitant]
     Dosage: 15 MILLIGRAM DAILY;
     Route: 048
  3. HYDROCODONE [Concomitant]
     Indication: KNEE OPERATION
     Route: 048

REACTIONS (2)
  - Device expulsion [Recovered/Resolved]
  - Metrorrhagia [Unknown]
